FAERS Safety Report 24229348 (Version 1)
Quarter: 2024Q3

REPORT INFORMATION
  Report Type: Spontaneous
  Country: CN (occurrence: CN)
  Receive Date: 20240820
  Receipt Date: 20240820
  Transmission Date: 20241016
  Serious: Yes (Other)
  Sender: ACCORD
  Company Number: CN-Accord-441491

PATIENT
  Age: 55 Year
  Sex: Female

DRUGS (9)
  1. CISPLATIN [Suspect]
     Active Substance: CISPLATIN
     Indication: Neuroendocrine carcinoma
     Dosage: (THORACIC PERFUSION) D1-3), 1 CYCLE
     Route: 034
     Dates: start: 20220310, end: 20220313
  2. ETOPOSIDE [Concomitant]
     Active Substance: ETOPOSIDE
     Indication: Neuroendocrine carcinoma
     Dosage: D1-3
     Route: 042
     Dates: start: 20220310, end: 202204
  3. SINTILIMAB [Concomitant]
     Active Substance: SINTILIMAB
     Indication: Neuroendocrine carcinoma
     Dosage: D1
     Route: 042
     Dates: start: 20220310, end: 202203
  4. CISPLATIN [Suspect]
     Active Substance: CISPLATIN
     Indication: Gallbladder cancer
     Dosage: (THORACIC PERFUSION) D1-3)
     Route: 034
     Dates: start: 20220310, end: 20220313
  5. ETOPOSIDE [Concomitant]
     Active Substance: ETOPOSIDE
     Indication: Gallbladder cancer
     Dosage: D1-3
     Dates: start: 20220310, end: 202204
  6. SINTILIMAB [Concomitant]
     Active Substance: SINTILIMAB
     Indication: Gallbladder cancer
     Dosage: D1
     Dates: start: 20220310, end: 202203
  7. CISPLATIN [Suspect]
     Active Substance: CISPLATIN
     Indication: Metastasis
     Dosage: (THORACIC PERFUSION) D1-3)
     Route: 034
     Dates: start: 20220310, end: 20220313
  8. ETOPOSIDE [Concomitant]
     Active Substance: ETOPOSIDE
     Indication: Metastasis
     Dosage: D1-3
     Dates: start: 20220310, end: 202204
  9. SINTILIMAB [Concomitant]
     Active Substance: SINTILIMAB
     Indication: Metastasis
     Dosage: D1
     Dates: start: 20220310, end: 202203

REACTIONS (3)
  - Abdominal infection [Unknown]
  - Nausea [Unknown]
  - Vomiting [Unknown]

NARRATIVE: CASE EVENT DATE: 20220301
